FAERS Safety Report 8174986-6 (Version None)
Quarter: 2012Q1

REPORT INFORMATION
  Report Type: 
  Country: None (occurrence: None)
  Receive Date: 20120227
  Receipt Date: 20120216
  Transmission Date: 20120608
  Serious: No
  Sender: FDA-Public Use
  Company Number: 2012SP009033

PATIENT

DRUGS (1)
  1. SAPHRIS [Suspect]
     Indication: PRODUCT USED FOR UNKNOWN INDICATION

REACTIONS (2)
  - MYALGIA [None]
  - RASH [None]
